FAERS Safety Report 19214412 (Version 6)
Quarter: 2022Q1

REPORT INFORMATION
  Report Type: Spontaneous
  Country: JP (occurrence: JP)
  Receive Date: 20210505
  Receipt Date: 20220204
  Transmission Date: 20220423
  Serious: Yes (Hospitalization, Other)
  Sender: FDA-Public Use
  Company Number: JP-ONO-2021JP010555

PATIENT
  Age: 64 Year
  Sex: Male
  Weight: 64 kg

DRUGS (57)
  1. PARSABIV [Suspect]
     Active Substance: ETELCALCETIDE HYDROCHLORIDE
     Indication: Hyperparathyroidism secondary
     Dosage: 5 MILLIGRAM, 3 TIMES/WK
     Route: 010
     Dates: start: 20210412, end: 20210611
  2. PARSABIV [Suspect]
     Active Substance: ETELCALCETIDE HYDROCHLORIDE
     Dosage: 7.5 MILLIGRAM, 3 TIMES/WK
     Route: 010
     Dates: start: 20210614, end: 20210709
  3. DARBEPOETIN ALFA [Concomitant]
     Active Substance: DARBEPOETIN ALFA
     Indication: Nephrogenic anaemia
     Dosage: 5 MICROGRAM, QWK
     Route: 042
     Dates: start: 20191106, end: 20191127
  4. DARBEPOETIN ALFA [Concomitant]
     Active Substance: DARBEPOETIN ALFA
     Dosage: 5 MICROGRAM, QWK
     Route: 042
     Dates: start: 20191218, end: 20200722
  5. DARBEPOETIN ALFA [Concomitant]
     Active Substance: DARBEPOETIN ALFA
     Dosage: 10 MICROGRAM, QWK
     Route: 042
     Dates: start: 20200729, end: 20200923
  6. DARBEPOETIN ALFA [Concomitant]
     Active Substance: DARBEPOETIN ALFA
     Dosage: 20 MICROGRAM, QWK
     Route: 042
     Dates: start: 20200930, end: 20201014
  7. DARBEPOETIN ALFA [Concomitant]
     Active Substance: DARBEPOETIN ALFA
     Dosage: 30 MICROGRAM, QWK
     Route: 042
     Dates: start: 20201021, end: 20201028
  8. DARBEPOETIN ALFA [Concomitant]
     Active Substance: DARBEPOETIN ALFA
     Dosage: 20 MICROGRAM, QWK
     Route: 042
     Dates: start: 20201104, end: 20210421
  9. DARBEPOETIN ALFA [Concomitant]
     Active Substance: DARBEPOETIN ALFA
     Dosage: 30 MICROGRAM, QWK
     Route: 042
     Dates: start: 20210428, end: 20210519
  10. DARBEPOETIN ALFA [Concomitant]
     Active Substance: DARBEPOETIN ALFA
     Dosage: 40 MICROGRAM, QWK
     Route: 042
     Dates: start: 20210526, end: 20210714
  11. DARBEPOETIN ALFA [Concomitant]
     Active Substance: DARBEPOETIN ALFA
     Dosage: 30 MICROGRAM, QWK
     Route: 042
     Dates: start: 20210721, end: 20210811
  12. DARBEPOETIN ALFA [Concomitant]
     Active Substance: DARBEPOETIN ALFA
     Dosage: 20 MICROGRAM, QWK
     Route: 042
     Dates: start: 20210818, end: 20210901
  13. DARBEPOETIN ALFA [Concomitant]
     Active Substance: DARBEPOETIN ALFA
     Dosage: 10 MICROGRAM, QWK
     Route: 042
     Dates: start: 20210908, end: 20211006
  14. DARBEPOETIN ALFA [Concomitant]
     Active Substance: DARBEPOETIN ALFA
     Dosage: 20 MICROGRAM, QWK
     Route: 042
     Dates: start: 20211020, end: 20211027
  15. DARBEPOETIN ALFA [Concomitant]
     Active Substance: DARBEPOETIN ALFA
     Dosage: 30 MICROGRAM
     Route: 042
     Dates: start: 20211103, end: 20211201
  16. DARBEPOETIN ALFA [Concomitant]
     Active Substance: DARBEPOETIN ALFA
     Dosage: 20 MICROGRAM, QWK
     Route: 042
     Dates: start: 20211208
  17. OXAROL [Concomitant]
     Active Substance: MAXACALCITOL
     Dosage: 2.5 MICROGRAM, 3 TIMES/WK
     Route: 065
     Dates: end: 20210915
  18. OXAROL [Concomitant]
     Active Substance: MAXACALCITOL
     Dosage: 5 MICROGRAM, 2 TIMES/WK
     Route: 065
     Dates: start: 20210917, end: 20211018
  19. OXAROL [Concomitant]
     Active Substance: MAXACALCITOL
     Dosage: 2.5 MICROGRAM, 3 TIMES/WK
     Route: 065
     Dates: start: 20211022, end: 20211101
  20. OXAROL [Concomitant]
     Active Substance: MAXACALCITOL
     Dosage: 2.5 MICROGRAM, 2 TIMES/WK
     Route: 065
     Dates: start: 20211105, end: 20211119
  21. OXAROL [Concomitant]
     Active Substance: MAXACALCITOL
     Dosage: 2.5 UG, Q56H
     Route: 065
     Dates: start: 20220114
  22. LEVOCARNITINE [Concomitant]
     Active Substance: LEVOCARNITINE
     Indication: Nephrogenic anaemia
     Dosage: 1000 MILLIGRAM, 3 TIMES/WK
     Route: 042
  23. ASPIRIN [Concomitant]
     Active Substance: ASPIRIN
     Indication: Prophylaxis
     Dosage: 100 MG, EVERYDAY, AFTER BREAKFAST
     Route: 048
     Dates: end: 20210422
  24. ASPIRIN [Concomitant]
     Active Substance: ASPIRIN
     Indication: Ischaemic heart disease prophylaxis
  25. LANSOPRAZOLE [Concomitant]
     Active Substance: LANSOPRAZOLE
     Indication: Gastrooesophageal reflux disease
     Dosage: 15 MG, EVERYDAY, AFTER BREAKFAST
     Route: 048
  26. PREDNISOLONE [Concomitant]
     Active Substance: PREDNISOLONE
     Indication: Glomerulonephritis chronic
     Dosage: 5 MG, EVERYDAY, AFTER BREAKFAST
     Route: 048
  27. NICORANDIL [Concomitant]
     Active Substance: NICORANDIL
     Indication: Angina pectoris
     Dosage: 5 MG, Q8H, AFTER EACH MEAL
     Route: 048
  28. REBAMIPIDE [Concomitant]
     Active Substance: REBAMIPIDE
     Indication: Chronic gastritis
     Dosage: 100 MG, Q8H, AFTER EACH MEAL
     Route: 048
  29. CARVEDILOL [Concomitant]
     Active Substance: CARVEDILOL
     Indication: Hypertension
     Dosage: 2.5 MG, ONCE A DAY, AFTER BREAKFAST, NON-DIALYSIS DAY
     Route: 048
  30. CARVEDILOL [Concomitant]
     Active Substance: CARVEDILOL
     Indication: Cardiac failure chronic
  31. VALSARTAN [Concomitant]
     Active Substance: VALSARTAN
     Indication: Hypertension
     Dosage: 10 MG, ONCE A DAY, AFTER BREAKFAST, NON-DIALYSIS DAY
     Route: 048
  32. DOMPERIDONE [Concomitant]
     Active Substance: DOMPERIDONE
     Indication: Abdominal discomfort
     Dosage: 10 MG, PRN
     Route: 048
     Dates: start: 20210409
  33. DOMPERIDONE [Concomitant]
     Active Substance: DOMPERIDONE
     Indication: Nausea
  34. HERBALS [Concomitant]
     Active Substance: HERBALS
     Indication: Abdominal discomfort
     Dosage: 2.5 G, Q8H, AFTER EACH MEAL
     Route: 048
  35. MOSAPRIDE CITRATE [Concomitant]
     Active Substance: MOSAPRIDE CITRATE
     Indication: Abdominal discomfort
     Dosage: 5 MG, Q8H, AFTER EACH MEAL
     Route: 048
  36. SENNOSIDES A AND B [Concomitant]
     Active Substance: SENNOSIDES A AND B
     Indication: Constipation
     Dosage: 24 MG, BEFORE SLEEP (ADJUSTMENT BY THE PATIENT)
     Route: 048
  37. SENNA LEAF [Concomitant]
     Active Substance: SENNA LEAF
     Indication: Constipation
     Dosage: 0.5 G, BEFORE SLEEP (ADJUSTMENT BY THE PATIENT)
     Route: 048
  38. DROXIDOPA [Concomitant]
     Active Substance: DROXIDOPA
     Indication: Dialysis hypotension
     Dosage: 200 MG, Q56H, DIALYSIS DAY
     Route: 048
  39. ICOSAPENT ETHYL [Concomitant]
     Active Substance: ICOSAPENT ETHYL
     Indication: Dyslipidaemia
     Dosage: 900 MG, EVERYDAY, AFTER DINNER
     Route: 048
  40. CLOPIDOGREL [Concomitant]
     Active Substance: CLOPIDOGREL BISULFATE
     Indication: Peripheral arterial occlusive disease
     Dosage: 75 MG, EVERYDAY, AFTER DINNER
     Route: 048
     Dates: start: 20191006, end: 20211013
  41. FOSRENOL [Concomitant]
     Active Substance: LANTHANUM CARBONATE
     Indication: Hyperphosphataemia
     Dosage: 500 MG, Q8H, IMMEDIATELY BEFORE EVERY MEAL
     Route: 048
     Dates: start: 20200424, end: 20211020
  42. FOSRENOL [Concomitant]
     Active Substance: LANTHANUM CARBONATE
     Dosage: 1500 MG, EVERYDAY
     Route: 048
     Dates: start: 20211223
  43. ROSUVASTATIN CALCIUM [Concomitant]
     Active Substance: ROSUVASTATIN CALCIUM
     Indication: Dyslipidaemia
     Dosage: 5 MG, EVERYDAY, AFTER DINNER
     Route: 048
     Dates: start: 20200601
  44. SODIUM PICOSULFATE [Concomitant]
     Active Substance: SODIUM PICOSULFATE
     Indication: Constipation
     Dosage: 10-15 DROPS/DOSE, PRN
     Route: 048
     Dates: start: 20200601
  45. WARFARIN [Concomitant]
     Active Substance: WARFARIN
     Dosage: UNK
     Route: 065
     Dates: start: 20210422, end: 20210614
  46. EVOCALCET [Concomitant]
     Active Substance: EVOCALCET
     Dosage: 2 MG, EVERYDAY
     Route: 048
     Dates: start: 20210712, end: 20210725
  47. EVOCALCET [Concomitant]
     Active Substance: EVOCALCET
     Dosage: 3 MG, EVERYDAY
     Route: 048
     Dates: start: 20210726, end: 20210805
  48. EVOCALCET [Concomitant]
     Active Substance: EVOCALCET
     Dosage: 4 MG, EVERYDAY
     Route: 048
     Dates: start: 20210806, end: 20220113
  49. EVOCALCET [Concomitant]
     Active Substance: EVOCALCET
     Dosage: 5 MG, EVERYDAY
     Route: 048
     Dates: start: 20220114
  50. METHYLCOBALAMIN [Concomitant]
     Active Substance: METHYLCOBALAMIN
     Indication: Carpal tunnel syndrome
     Dosage: 500 UG, Q8H, AFTER EACH MEAL
     Route: 048
     Dates: start: 20200901
  51. LINAGLIPTIN [Concomitant]
     Active Substance: LINAGLIPTIN
     Indication: Type 2 diabetes mellitus
     Dosage: 5 MG, EVERYDAY, AFTER BREAKFAST
     Route: 048
     Dates: start: 20210607, end: 20211024
  52. ACETAMINOPHEN [Concomitant]
     Active Substance: ACETAMINOPHEN
     Indication: Carpal tunnel syndrome
     Dosage: 250 MG, Q8H, AFTER EACH MEAL
     Route: 048
     Dates: start: 20210728
  53. ACETAMINOPHEN [Concomitant]
     Active Substance: ACETAMINOPHEN
     Indication: Pain
  54. ADETPHOS [Concomitant]
     Active Substance: ADENOSINE TRIPHOSPHATE
     Indication: Dizziness
     Dosage: 1 G, Q8H, AFTER EACH MEAL
     Route: 048
     Dates: start: 20211004
  55. BETAHISTINE MESILATE [Concomitant]
     Active Substance: BETAHISTINE MESILATE
     Indication: Dizziness
     Dosage: 6 MG, Q8H, AFTER EACH MEAL
     Route: 048
     Dates: start: 20211004
  56. IFENPRODIL [Concomitant]
     Active Substance: IFENPRODIL
     Indication: Dizziness
     Dosage: 20 MG, Q8H, AFTER EACH MEAL
     Route: 048
     Dates: start: 20211008
  57. RIKKUNSHITO [ATRACTYLODES LANCEA RHIZOME;CITRUS AURANTIUM PEEL;GLYCYRR [Concomitant]
     Indication: Abdominal discomfort
     Dosage: 2.5 G, Q12H, AFTER BREAKFAST AND DINNER
     Route: 048

REACTIONS (1)
  - Myelopathy [Recovering/Resolving]

NARRATIVE: CASE EVENT DATE: 20211013
